FAERS Safety Report 9163126 (Version 1)
Quarter: 2013Q1

REPORT INFORMATION
  Report Type: Spontaneous
  Country: US (occurrence: US)
  Receive Date: 20130314
  Receipt Date: 20130314
  Transmission Date: 20140127
  Serious: Yes (Hospitalization, Disabling, Other)
  Sender: FDA-Public Use
  Company Number: US-009507513-1107USA03582

PATIENT
  Sex: Female
  Weight: 57.15 kg

DRUGS (6)
  1. FOSAMAX [Suspect]
     Indication: OSTEOPOROSIS
     Route: 048
     Dates: start: 1996, end: 201006
  2. FOSAMAX [Suspect]
     Indication: OSTEOPENIA
     Dosage: 5 MG, UNK
     Route: 048
     Dates: start: 20000705, end: 20010125
  3. FOSAMAX [Suspect]
     Dosage: 70 MG, QW
     Route: 048
     Dates: start: 20010311, end: 201102
  4. FOSAMAX [Suspect]
     Indication: OSTEOPOROSIS
     Dosage: 70 MG, UNK
     Route: 048
     Dates: start: 20081022, end: 20100419
  5. FOSAMAX [Suspect]
     Indication: OSTEOPENIA
  6. CALCIUM (UNSPECIFIED) [Concomitant]

REACTIONS (37)
  - Femur fracture [Unknown]
  - Fall [Unknown]
  - Chest pain [Recovered/Resolved]
  - Anxiety [Unknown]
  - Anaemia postoperative [Unknown]
  - Thyroid disorder [Unknown]
  - Post procedural haemorrhage [Unknown]
  - Post procedural constipation [Unknown]
  - Gastrooesophageal reflux disease [Unknown]
  - Low turnover osteopathy [Unknown]
  - Gingival bleeding [Unknown]
  - Gingival recession [Unknown]
  - Urinary tract infection [Unknown]
  - Occult blood [Unknown]
  - Rectal polyp [Unknown]
  - Lymphocytosis [Recovered/Resolved]
  - Blood cholesterol increased [Unknown]
  - Foot fracture [Unknown]
  - Gastroenteritis viral [Unknown]
  - Hyperlipidaemia [Unknown]
  - Family stress [Unknown]
  - Blood pressure increased [Unknown]
  - Large intestine polyp [Unknown]
  - Haemorrhoids [Unknown]
  - Oesophageal spasm [Unknown]
  - Mass [Unknown]
  - Body height decreased [Unknown]
  - Tinnitus [Unknown]
  - Pollakiuria [Unknown]
  - Dysuria [Unknown]
  - Jaw fracture [Unknown]
  - Mitral valve incompetence [Unknown]
  - Tinnitus [Unknown]
  - Pain in extremity [Unknown]
  - Aphthous stomatitis [Unknown]
  - Vertigo [Recovered/Resolved]
  - Diarrhoea [Recovered/Resolved]
